FAERS Safety Report 7003699-9 (Version None)
Quarter: 2010Q3

REPORT INFORMATION
  Report Type: 
  Country: None (occurrence: None)
  Receive Date: 20100920
  Receipt Date: 20090407
  Transmission Date: 20110219
  Serious: No
  Sender: FDA-Public Use
  Company Number: US-WYE-H08855709

PATIENT
  Sex: Female
  Weight: 59.02 kg

DRUGS (5)
  1. PROTONIX [Suspect]
     Indication: ABDOMINAL DISCOMFORT
     Route: 048
     Dates: start: 20090401
  2. PROTONIX [Suspect]
     Indication: FLATULENCE
  3. COZAAR [Concomitant]
  4. ATENOLOL [Concomitant]
  5. HYDROCHLOROTHIAZIDE [Concomitant]

REACTIONS (3)
  - DRY THROAT [None]
  - NAUSEA [None]
  - OESOPHAGEAL PAIN [None]
